FAERS Safety Report 8953598 (Version 2)
Quarter: 2012Q4

REPORT INFORMATION
  Report Type: Report from Study
  Country: AU (occurrence: AU)
  Receive Date: 20121206
  Receipt Date: 20121211
  Transmission Date: 20130627
  Serious: Yes (Hospitalization, Other)
  Sender: FDA-Public Use
  Company Number: AU-PFIZER INC-2012300883

PATIENT
  Age: 78 Year
  Sex: Male
  Weight: 67.5 kg

DRUGS (15)
  1. TEMSIROLIMUS [Suspect]
     Indication: MANTLE CELL LYMPHOMA
     Dosage: 75 mg, weekly (ARM B)
     Route: 042
     Dates: start: 20121017
  2. DESIPRAMINE [Suspect]
     Indication: MANTLE CELL LYMPHOMA
     Dosage: 50 mg, weekly for two weeks
     Route: 048
     Dates: start: 20121010, end: 20121017
  3. ATORVASTATIN CALCIUM [Concomitant]
     Indication: DYSLIPIDAEMIA
     Dosage: 40 mg, 1x/day
     Route: 048
     Dates: start: 20120227
  4. FOLIC ACID [Concomitant]
     Indication: SUPPLEMENTATION THERAPY
     Dosage: 500 ug, 1x/day
     Route: 048
     Dates: start: 20120318
  5. MONOPRIL [Concomitant]
     Indication: IHD
     Dosage: 5 mg, 1x/day
     Route: 048
     Dates: start: 20120124
  6. METFORMIN HYDROCHLORIDE [Concomitant]
     Indication: NIDDM
     Dosage: 500 mg, 2x/day
     Route: 048
     Dates: start: 20120227
  7. ACETYLSALICYLIC ACID [Concomitant]
     Indication: PROPHYLAXIS
     Dosage: 100 mg, alternate day
     Route: 048
  8. EZETIMIBE [Concomitant]
     Indication: CHOLESTEROL
     Dosage: 10 mg, 1x/day
     Route: 048
     Dates: start: 20120227
  9. METOCLOPRAMIDE [Concomitant]
     Indication: NAUSEA
     Dosage: 10 mg, as needed
     Route: 048
     Dates: start: 20121116
  10. VITAMIN B12 [Concomitant]
     Indication: SUPPLEMENTATION THERAPY
     Dosage: 1000 ug, 1x/day
     Route: 048
     Dates: start: 20080318
  11. GLYCERYL TRINITRATE [Concomitant]
     Indication: ANGINA PECTORIS
     Dosage: 400 ug, as needed
     Route: 060
     Dates: start: 20110905
  12. FERROGRAD [Concomitant]
     Indication: IRON DEFICIENCY
     Dosage: 325 mg, 1x/day
     Route: 048
     Dates: start: 20120318
  13. CARDIZEM [Concomitant]
     Indication: IHD
     Dosage: 240 mg, 1x/day
     Route: 048
     Dates: start: 20120227
  14. VITAMIN D [Concomitant]
     Indication: SUPPLEMENTATION THERAPY
     Dosage: 5 ug, 1x/day
     Route: 048
     Dates: start: 20120531
  15. NILSTAT [Concomitant]
     Indication: ORAL THRUSH
     Dosage: 4 ml, 4x/day
     Route: 048
     Dates: start: 20121102, end: 20121116

REACTIONS (1)
  - Pneumonitis [Not Recovered/Not Resolved]
